FAERS Safety Report 5887539-7 (Version None)
Quarter: 2008Q3

REPORT INFORMATION
  Report Type: 
  Country: None (occurrence: None)
  Receive Date: 20080918
  Receipt Date: 20080910
  Transmission Date: 20090109
  Serious: Yes (Death)
  Sender: FDA-Public Use
  Company Number: PHEH2008US08037

PATIENT
  Sex: Male

DRUGS (2)
  1. LOPRESSOR [Suspect]
     Dosage: UNK
     Dates: start: 20060125
  2. LOPRESSOR [Suspect]
     Dosage: UNK
     Dates: start: 20060125

REACTIONS (1)
  - ISCHAEMIC STROKE [None]
